FAERS Safety Report 24557617 (Version 1)
Quarter: 2024Q4

REPORT INFORMATION
  Report Type: Spontaneous
  Country: FR (occurrence: FR)
  Receive Date: 20241028
  Receipt Date: 20241028
  Transmission Date: 20250115
  Serious: Yes (Congenital Anomaly, Other)
  Sender: MYLAN
  Company Number: None

PATIENT
  Age: 23 Year
  Sex: Female

DRUGS (2)
  1. TRAMADOL [Suspect]
     Active Substance: TRAMADOL
     Indication: Product used for unknown indication
     Dosage: UP TO 2200 MG/DAY
     Route: 048
     Dates: start: 2022
  2. Temesta [Concomitant]
     Indication: Product used for unknown indication
     Dosage: UP TO 6 TABLETS OF 2.5 MG/DAY
     Route: 048
     Dates: start: 202306

REACTIONS (6)
  - Drug use disorder [Unknown]
  - Foetal growth restriction [Unknown]
  - Foetal hypokinesia [Unknown]
  - Small for dates baby [Unknown]
  - Generalised tonic-clonic seizure [Recovered/Resolved]
  - Maternal exposure during pregnancy [Unknown]

NARRATIVE: CASE EVENT DATE: 20220101
